FAERS Safety Report 5589816-6 (Version None)
Quarter: 2008Q1

REPORT INFORMATION
  Report Type: 
  Country: None (occurrence: None)
  Receive Date: 20080114
  Receipt Date: 20071219
  Transmission Date: 20080703
  Serious: Yes (Hospitalization)
  Sender: FDA-Public Use
  Company Number: FR-BAYER-200810155GPV

PATIENT
  Age: 64 Year
  Sex: Female

DRUGS (5)
  1. BETAFERON [Suspect]
     Indication: MULTIPLE SCLEROSIS
     Dates: start: 19980101, end: 19990101
  2. ENDOXAN (CYCLOPHOSPHAMIDE ANHYDRE) [Suspect]
     Indication: MULTIPLE SCLEROSIS
     Dates: start: 19990101
  3. NOVANTRONE (MITOXANTRONE CHLORHYDRATE) [Suspect]
     Indication: MULTIPLE SCLEROSIS
     Route: 042
     Dates: start: 20020901, end: 20041201
  4. METHOTREXATE [Suspect]
     Indication: MULTIPLE SCLEROSIS
     Dates: start: 20050101, end: 20061101
  5. PURINETHOL [Concomitant]

REACTIONS (1)
  - ACUTE MYELOID LEUKAEMIA [None]
